FAERS Safety Report 9678337 (Version 3)
Quarter: 2013Q4

REPORT INFORMATION
  Report Type: Spontaneous
  Country: US (occurrence: US)
  Receive Date: 20131108
  Receipt Date: 20131210
  Transmission Date: 20140711
  Serious: Yes (Death, Hospitalization, Other)
  Sender: FDA-Public Use
  Company Number: US-TEVA-440320USA

PATIENT
  Age: 41 Year
  Sex: Female
  Weight: 83.99 kg

DRUGS (3)
  1. FENTORA [Suspect]
     Indication: BREAKTHROUGH PAIN
  2. FENTANYL [Concomitant]
     Indication: PAIN
     Dosage: 100 MCG
  3. ROXANOL [Concomitant]
     Indication: PAIN

REACTIONS (3)
  - Death [Fatal]
  - Adverse event [Not Recovered/Not Resolved]
  - Investigation [Unknown]
